FAERS Safety Report 4283674-8 (Version None)
Quarter: 2004Q1

REPORT INFORMATION
  Report Type: 
  Country: None (occurrence: None)
  Receive Date: 20040129
  Receipt Date: 20040129
  Transmission Date: 20041129
  Serious: Yes (Life-Threatening, Hospitalization)
  Sender: FDA-Public Use
  Company Number: None

PATIENT
  Age: 44 Year
  Sex: Male
  Weight: 80.3 kg

DRUGS (7)
  1. PHENYTOIN [Suspect]
     Indication: CONVULSION PROPHYLAXIS
  2. NAFCILLIN SODIUM [Suspect]
     Indication: CELLULITIS
     Dosage: 2G Q4 HRS IV
     Route: 042
     Dates: start: 20030804, end: 20030806
  3. CLONIDINE [Concomitant]
  4. PROMETHAZINE [Concomitant]
  5. HYDROCHLOROTHIAZIDE [Concomitant]
  6. NIFEDIPINE [Concomitant]
  7. ENALAPRIL MALEATE [Concomitant]

REACTIONS (22)
  - ASTHENIA [None]
  - BLOOD CULTURE POSITIVE [None]
  - CHILLS [None]
  - CONFUSIONAL STATE [None]
  - DECREASED APPETITE [None]
  - DERMATITIS EXFOLIATIVE [None]
  - EOSINOPHILIA [None]
  - GLOSSITIS [None]
  - HAEMOLYTIC ANAEMIA [None]
  - HEPATIC ENCEPHALOPATHY [None]
  - LABORATORY TEST ABNORMAL [None]
  - LETHARGY [None]
  - LIVER FUNCTION TEST ABNORMAL [None]
  - MUCOSAL INFLAMMATION [None]
  - NAUSEA [None]
  - PYREXIA [None]
  - RASH [None]
  - RASH GENERALISED [None]
  - RASH MACULO-PAPULAR [None]
  - STAPHYLOCOCCAL INFECTION [None]
  - WEIGHT DECREASED [None]
  - WHITE BLOOD CELL COUNT INCREASED [None]
